FAERS Safety Report 16100853 (Version 3)
Quarter: 2019Q2

REPORT INFORMATION
  Report Type: Spontaneous
  Country: US (occurrence: US)
  Receive Date: 20190321
  Receipt Date: 20190425
  Transmission Date: 20190711
  Serious: Yes (Other)
  Sender: FDA-Public Use
  Company Number: US-CELGENEUS-USA-20190301777

PATIENT
  Age: 85 Year
  Sex: Female

DRUGS (1)
  1. POMALYST [Suspect]
     Active Substance: POMALIDOMIDE
     Indication: PLASMA CELL MYELOMA
     Dosage: 1 MILLIGRAM
     Route: 048
     Dates: start: 20190220

REACTIONS (8)
  - Full blood count decreased [Unknown]
  - Bone marrow failure [Unknown]
  - Platelet count decreased [Unknown]
  - Contusion [Unknown]
  - Laboratory test abnormal [Unknown]
  - Haematoma [Unknown]
  - White blood cell count decreased [Unknown]
  - Plasma cell myeloma [Unknown]

NARRATIVE: CASE EVENT DATE: 2019
